FAERS Safety Report 15245027 (Version 2)
Quarter: 2020Q3

REPORT INFORMATION
  Report Type: Spontaneous
  Country: CA (occurrence: CA)
  Receive Date: 20180806
  Receipt Date: 20180830
  Transmission Date: 20201104
  Serious: Yes (Hospitalization)
  Sender: FDA-Public Use
  Company Number: CA-CELGENEUS-CAN-20180709041

PATIENT
  Age: 73 Year
  Sex: Male

DRUGS (4)
  1. TREMELIMUMAB. [Suspect]
     Active Substance: TREMELIMUMAB
     Indication: PANCREATIC CARCINOMA
     Dosage: 75 MILLIGRAM
     Route: 041
     Dates: start: 20170921
  2. DURVALUMAB. [Suspect]
     Active Substance: DURVALUMAB
     Indication: PANCREATIC CARCINOMA
     Dosage: 1500 MILLIGRAM
     Route: 041
     Dates: start: 20170921, end: 20180627
  3. ABRAXANE [Suspect]
     Active Substance: PACLITAXEL
     Indication: PANCREATIC CARCINOMA
     Dosage: 220 MILLIGRAM
     Route: 041
     Dates: start: 20170921
  4. GEMCITABINE. [Suspect]
     Active Substance: GEMCITABINE
     Indication: PANCREATIC CARCINOMA
     Dosage: 1880 MILLIGRAM
     Route: 041
     Dates: start: 20170921

REACTIONS (1)
  - Embolism [Recovered/Resolved]

NARRATIVE: CASE EVENT DATE: 20180717
